FAERS Safety Report 4504332-8 (Version None)
Quarter: 2004Q4

REPORT INFORMATION
  Report Type: 
  Country: None (occurrence: None)
  Receive Date: 20041118
  Receipt Date: 20040614
  Transmission Date: 20050328
  Serious: Yes (Hospitalization)
  Sender: FDA-Public Use
  Company Number: 200412352FR

PATIENT
  Age: 34 Year
  Sex: Male

DRUGS (7)
  1. BIPROFENID [Suspect]
     Route: 048
     Dates: start: 20040420, end: 20040513
  2. CORTANCYL [Suspect]
     Route: 048
     Dates: start: 20040420, end: 20040504
  3. RIFADIN [Suspect]
     Route: 048
     Dates: start: 20040420, end: 20040504
  4. RIMIFON [Suspect]
     Route: 048
     Dates: start: 20040420, end: 20040504
  5. IMMUCYST [Concomitant]
     Indication: BLADDER NEOPLASM
     Dates: start: 20040101
  6. SKENAN [Concomitant]
     Route: 048
     Dates: start: 20040420
  7. PROZAC [Concomitant]
     Route: 048
     Dates: start: 20040420

REACTIONS (2)
  - ANXIETY [None]
  - MANIA [None]
